FAERS Safety Report 17109825 (Version 3)
Quarter: 2020Q1

REPORT INFORMATION
  Report Type: Spontaneous
  Country: US (occurrence: US)
  Receive Date: 20191204
  Receipt Date: 20200205
  Transmission Date: 20200409
  Serious: No
  Sender: FDA-Public Use
  Company Number: US-BAYER-2019-219022

PATIENT
  Age: 77 Year
  Sex: Female

DRUGS (2)
  1. CLARITIN-D 24 HOUR [Suspect]
     Active Substance: LORATADINE\PSEUDOEPHEDRINE SULFATE
     Indication: ALLERGIC RESPIRATORY SYMPTOM
     Dosage: 1 DF (5 DAYS ONLY)
     Route: 048
     Dates: start: 20191127, end: 20191203
  2. CLARITIN-D 24 HOUR [Suspect]
     Active Substance: LORATADINE\PSEUDOEPHEDRINE SULFATE
     Indication: NASOPHARYNGITIS

REACTIONS (2)
  - Therapeutic response shortened [Unknown]
  - Product label issue [None]

NARRATIVE: CASE EVENT DATE: 20191127
